FAERS Safety Report 6834814-5 (Version None)
Quarter: 2010Q3

REPORT INFORMATION
  Report Type: 
  Country: None (occurrence: None)
  Receive Date: 20100712
  Receipt Date: 20070503
  Transmission Date: 20110219
  Serious: No
  Sender: FDA-Public Use
  Company Number: US-PFIZER INC-2007026835

PATIENT
  Sex: Female
  Weight: 74.4 kg

DRUGS (8)
  1. CHANTIX [Suspect]
     Indication: SMOKING CESSATION THERAPY
     Dates: start: 20070328
  2. WARFARIN SODIUM [Concomitant]
  3. NORVASC [Concomitant]
  4. LOVASTATIN [Concomitant]
     Indication: BLOOD CHOLESTEROL INCREASED
  5. DIAZEPAM [Concomitant]
  6. PERCOCET [Concomitant]
     Indication: FALL
  7. PROZAC [Concomitant]
     Indication: DEPRESSION
  8. FOLIC ACID [Concomitant]

REACTIONS (7)
  - DEPRESSION [None]
  - DRY MOUTH [None]
  - HEARING IMPAIRED [None]
  - LETHARGY [None]
  - NAUSEA [None]
  - NOCTURIA [None]
  - TOBACCO USER [None]
